FAERS Safety Report 4325345-5 (Version None)
Quarter: 2004Q1

REPORT INFORMATION
  Report Type: 
  Country: None (occurrence: None)
  Receive Date: 20040323
  Receipt Date: 20040311
  Transmission Date: 20041129
  Serious: Yes (Death)
  Sender: FDA-Public Use
  Company Number: 2004-DE-01196GD

PATIENT
  Sex: 0

DRUGS (1)
  1. TRIAZOLAM [Suspect]

REACTIONS (1)
  - DRUG TOXICITY [None]
